FAERS Safety Report 13510917 (Version 1)
Quarter: 2017Q2

REPORT INFORMATION
  Report Type: Spontaneous
  Country: US (occurrence: US)
  Receive Date: 20170503
  Receipt Date: 20170503
  Transmission Date: 20170830
  Serious: Yes (Disabling)
  Sender: FDA-Public Use
  Company Number: None

PATIENT
  Age: 84 Year
  Sex: Male
  Weight: 85.5 kg

DRUGS (7)
  1. BETAPACE [Suspect]
     Active Substance: SOTALOL HYDROCHLORIDE
     Indication: ATRIAL FIBRILLATION
     Dosage: ?          QUANTITY:1 TABLET(S);?
     Route: 048
     Dates: start: 20170427, end: 20170502
  2. CPAP [Concomitant]
     Active Substance: DEVICE
  3. ALBUTEROL NEBULIZER AEROSOL INHALER [Concomitant]
  4. MULTIVITAMIN [Concomitant]
     Active Substance: VITAMINS
  5. XERTROL [Concomitant]
  6. SYNTHROIDE [Concomitant]
  7. ISOR0B [Concomitant]

REACTIONS (8)
  - Chest discomfort [None]
  - Myalgia [None]
  - Decreased appetite [None]
  - Loss of personal independence in daily activities [None]
  - Dyspnoea [None]
  - Arthralgia [None]
  - Asthenia [None]
  - Fatigue [None]

NARRATIVE: CASE EVENT DATE: 20170427
